FAERS Safety Report 9283673 (Version 2)
Quarter: 2013Q3

REPORT INFORMATION
  Report Type: Spontaneous
  Country: US (occurrence: US)
  Receive Date: 20130510
  Receipt Date: 20130712
  Transmission Date: 20140515
  Serious: Yes (Hospitalization)
  Sender: FDA-Public Use
  Company Number: US-GLAXOSMITHKLINE-A1009205A

PATIENT
  Age: 64 Year
  Sex: Male

DRUGS (3)
  1. FLOLAN [Suspect]
     Indication: PULMONARY ARTERIAL HYPERTENSION
     Dosage: 53NGKM CONTINUOUS
     Route: 042
     Dates: start: 20071018
  2. REVATIO [Concomitant]
  3. TRACLEER [Concomitant]

REACTIONS (4)
  - Bronchitis [Unknown]
  - Hospitalisation [Unknown]
  - Medical device complication [Unknown]
  - Central venous catheterisation [Unknown]
